FAERS Safety Report 9250129 (Version 3)
Quarter: 2013Q3

REPORT INFORMATION
  Report Type: Spontaneous
  Country: US (occurrence: US)
  Receive Date: 20130424
  Receipt Date: 20130717
  Transmission Date: 20140515
  Serious: No
  Sender: FDA-Public Use
  Company Number: US-BIOGENIDEC-2013BI035861

PATIENT
  Age: 66 Year
  Sex: Female

DRUGS (2)
  1. TYSABRI [Suspect]
     Indication: MULTIPLE SCLEROSIS
     Route: 042
     Dates: start: 20121001, end: 20130513
  2. AVONEX [Concomitant]
     Indication: MULTIPLE SCLEROSIS
     Route: 030
     Dates: start: 20120927

REACTIONS (8)
  - Anaemia [Recovered/Resolved]
  - Central nervous system lesion [Not Recovered/Not Resolved]
  - Abasia [Not Recovered/Not Resolved]
  - Bedridden [Recovered/Resolved]
  - Drug ineffective [Unknown]
  - Blood pressure decreased [Unknown]
  - Cystitis [Recovered/Resolved]
  - Pyrexia [Recovered/Resolved]
